FAERS Safety Report 9130290 (Version 2)
Quarter: 2013Q2

REPORT INFORMATION
  Report Type: Spontaneous
  Country: US (occurrence: US)
  Receive Date: 20130228
  Receipt Date: 20130503
  Transmission Date: 20140414
  Serious: Yes (Hospitalization)
  Sender: FDA-Public Use
  Company Number: US-UCBSA-079314

PATIENT
  Age: 44 Year
  Sex: Male
  Weight: 79.3 kg

DRUGS (1)
  1. KEPPRA XR [Suspect]
     Indication: CONVULSION
     Dosage: DOSE STRENGH : 500 MG
     Dates: start: 20130209

REACTIONS (2)
  - Epilepsy [Unknown]
  - Inappropriate schedule of drug administration [Unknown]
